FAERS Safety Report 6685546-8 (Version None)
Quarter: 2010Q2

REPORT INFORMATION
  Report Type: 
  Country: None (occurrence: None)
  Receive Date: 20100419
  Receipt Date: 20100408
  Transmission Date: 20101027
  Serious: No
  Sender: FDA-Public Use
  Company Number: US-BIOGENIDEC-2010BI012173

PATIENT
  Sex: Male

DRUGS (3)
  1. TYSABRI [Suspect]
     Indication: MULTIPLE SCLEROSIS
     Route: 042
     Dates: start: 20080418
  2. DIURETIC (NOS) [Concomitant]
     Indication: CARDIAC DISORDER
  3. DIURETIC (NOS) [Concomitant]
     Indication: PERICARDIAL EFFUSION

REACTIONS (3)
  - BLOOD CHOLESTEROL INCREASED [None]
  - COORDINATION ABNORMAL [None]
  - HYPOAESTHESIA [None]
